FAERS Safety Report 9880693 (Version 1)
Quarter: 2014Q1

REPORT INFORMATION
  Report Type: Spontaneous
  Country: CA (occurrence: None)
  Receive Date: 20140205
  Receipt Date: 20140205
  Transmission Date: 20141002
  Serious: No
  Sender: FDA-Public Use
  Company Number: IMP_07448_2014

PATIENT
  Age: 68 Year
  Sex: Male
  Weight: 80 kg

DRUGS (11)
  1. METFORMIN [Suspect]
     Indication: PRODUCT USED FOR UNKNOWN INDICATION
  2. AMLODIPINE [Suspect]
     Indication: PRODUCT USED FOR UNKNOWN INDICATION
  3. ETHANOL [Suspect]
     Indication: PRODUCT USED FOR UNKNOWN INDICATION
     Dosage: DF
  4. ACETYLSALICYLIC ACID [Concomitant]
  5. AMLODIPINE [Concomitant]
  6. CLONAZEPAM [Concomitant]
  7. GLYBURIDE [Concomitant]
  8. IRBESARTAN [Concomitant]
  9. METFORMIN [Concomitant]
  10. TAMSULOSIN [Concomitant]
  11. VITAMIN B12 NOS [Concomitant]

REACTIONS (8)
  - Pallor [None]
  - Haemodynamic instability [None]
  - Hyperhidrosis [None]
  - Blood pressure decreased [None]
  - Shock [None]
  - Hyperglycaemia [None]
  - Oliguria [None]
  - Acidosis [None]
